FAERS Safety Report 18542291 (Version 2)
Quarter: 2020Q4

REPORT INFORMATION
  Report Type: Spontaneous
  Country: AT (occurrence: AT)
  Receive Date: 20201125
  Receipt Date: 20201204
  Transmission Date: 20210114
  Serious: Yes (Hospitalization, Other)
  Sender: FDA-Public Use
  Company Number: AT-B.I. PHARMACEUTICALS,INC./RIDGEFIELD-2020-BI-062856

PATIENT
  Age: 63 Year
  Weight: 88 kg

DRUGS (2)
  1. SYNJARDY [Suspect]
     Active Substance: EMPAGLIFLOZIN\METFORMIN HYDROCHLORIDE
     Indication: TYPE 2 DIABETES MELLITUS
     Dosage: 12.5 / 1000 MG 1-0-1
     Route: 065
     Dates: end: 20201109
  2. INSULIN [Concomitant]
     Active Substance: INSULIN NOS
     Dosage: IS THE PATIENT CURRENTLY ON INSULIN THERAPY? YES, CURRENTLY ONGOING IN THE COURSE OF THE HOSPITALIZA
     Dates: start: 20201109

REACTIONS (7)
  - Renal failure [Unknown]
  - Ketoacidosis [Recovered/Resolved]
  - Coinfection [Unknown]
  - Altered state of consciousness [Unknown]
  - Respiratory failure [Unknown]
  - COVID-19 [Not Recovered/Not Resolved]
  - Dehydration [Unknown]

NARRATIVE: CASE EVENT DATE: 20201109
